FAERS Safety Report 8782543 (Version 1)
Quarter: 2012Q4

REPORT INFORMATION
  Report Type: 
  Country: US (occurrence: US)
  Receive Date: 20120913
  Receipt Date: 20120913
  Transmission Date: 20130627
  Serious: No
  Sender: FDA-Public Use
  Company Number: US-VERTEX PHARMACEUTICAL INC.-AE-2012-010594

PATIENT

DRUGS (6)
  1. INCIVEK [Suspect]
     Indication: HEPATITIS C
     Route: 048
     Dates: start: 20120621
  2. PEGINTERFERON [Concomitant]
     Indication: HEPATITIS C
     Dates: start: 1999
  3. PEGINTERFERON [Concomitant]
     Dates: start: 2007
  4. PEGINTERFERON [Concomitant]
     Dates: start: 20120621
  5. RIBAVIRIN [Concomitant]
     Indication: HEPATITIS C
     Dates: start: 2007
  6. RIBAVIRIN [Concomitant]
     Dates: start: 20120621

REACTIONS (2)
  - Dizziness [Unknown]
  - Nausea [Unknown]
